FAERS Safety Report 13461024 (Version 1)
Quarter: 2017Q2

REPORT INFORMATION
  Report Type: Spontaneous
  Country: US (occurrence: US)
  Receive Date: 20170420
  Receipt Date: 20170420
  Transmission Date: 20170830
  Serious: No
  Sender: FDA-Public Use
  Company Number: US-BAYER-2017-075512

PATIENT
  Age: 87 Year
  Sex: Female
  Weight: 48.98 kg

DRUGS (1)
  1. ALEVE [Suspect]
     Active Substance: NAPROXEN SODIUM
     Indication: ANXIETY
     Dosage: 1 DF, UNK
     Route: 048

REACTIONS (3)
  - Expired product administered [None]
  - Product use in unapproved indication [Unknown]
  - Therapeutic response unexpected [Unknown]
